FAERS Safety Report 6133105-8 (Version None)
Quarter: 2009Q1

REPORT INFORMATION
  Report Type: 
  Country: None (occurrence: None)
  Receive Date: 20090326
  Receipt Date: 20090320
  Transmission Date: 20090719
  Serious: Yes (Hospitalization)
  Sender: FDA-Public Use
  Company Number: US-BIOGENIDEC-2009BI006376

PATIENT
  Age: 45 Year
  Sex: Female
  Weight: 57 kg

DRUGS (1)
  1. TYSABRI [Suspect]
     Indication: MULTIPLE SCLEROSIS
     Route: 042
     Dates: start: 20070904, end: 20080522

REACTIONS (5)
  - ENTEROCOCCAL INFECTION [None]
  - FUNGUS URINE TEST POSITIVE [None]
  - RESPIRATORY FAILURE [None]
  - SEPSIS [None]
  - WOUND INFECTION PSEUDOMONAS [None]
